FAERS Safety Report 16286276 (Version 2)
Quarter: 2019Q2

REPORT INFORMATION
  Report Type: Spontaneous
  Country: US (occurrence: US)
  Receive Date: 20190508
  Receipt Date: 20190620
  Transmission Date: 20190711
  Serious: No
  Sender: FDA-Public Use
  Company Number: US-PFIZER INC-2019191463

PATIENT
  Age: 53 Year
  Sex: Female

DRUGS (1)
  1. IBRANCE [Suspect]
     Active Substance: PALBOCICLIB
     Dosage: 125 MG, CYCLIC (TAKE 1 CAPSULE 125 MG BY MOUTH EVERY DAY FOR 21 CONSECUTIVE DAYS,FOLLOWED BY 7 DAYS)
     Route: 048
     Dates: start: 20190409

REACTIONS (1)
  - Rash [Unknown]
